FAERS Safety Report 8178208-1 (Version None)
Quarter: 2012Q1

REPORT INFORMATION
  Report Type: 
  Country: None (occurrence: None)
  Receive Date: 20120301
  Receipt Date: 20120227
  Transmission Date: 20120608
  Serious: Yes (Death, Other)
  Sender: FDA-Public Use
  Company Number: CHPA2012US003658

PATIENT
  Age: 14 Year
  Sex: Male

DRUGS (10)
  1. DIPHENHYDRAMINE HCL [Suspect]
     Dosage: UNK, UNK
     Route: 048
  2. QUETIAPINE [Suspect]
     Dosage: UNK, UNK
     Route: 048
  3. LISDEXAMFETAMINE DIMESYLATE [Suspect]
     Dosage: UNK, UNK
     Route: 048
  4. CODEINE SULFATE [Suspect]
     Dosage: UNK, UNK
     Route: 048
  5. LAXATIVES [Suspect]
     Dosage: UNK, UNK
     Route: 048
  6. PENICILLIN [Suspect]
     Dosage: UNK, UNK
     Route: 048
  7. VALPROIC ACID [Suspect]
     Dosage: UNK, UNK
     Route: 048
  8. CLONIDINE [Suspect]
     Dosage: UNK, UNK
     Route: 048
  9. ARIPIPRAZOLE [Suspect]
     Dosage: UNK, UNK
     Route: 048
  10. MELOXICAM [Suspect]
     Dosage: UNK, UNK
     Route: 048

REACTIONS (2)
  - DEATH [None]
  - CARDIO-RESPIRATORY ARREST [None]
